FAERS Safety Report 9058590 (Version 2)
Quarter: 2013Q2

REPORT INFORMATION
  Report Type: Spontaneous
  Country: US (occurrence: US)
  Receive Date: 20130211
  Receipt Date: 20130401
  Transmission Date: 20140414
  Serious: No
  Sender: FDA-Public Use
  Company Number: US-PFIZER INC-2013053089

PATIENT
  Age: 68 Year
  Sex: Female
  Weight: 53.06 kg

DRUGS (2)
  1. ADVIL PM [Suspect]
     Indication: PAIN IN EXTREMITY
     Dosage: UNK
     Route: 048
     Dates: start: 20130205
  2. LIPITOR [Concomitant]
     Indication: BLOOD CHOLESTEROL ABNORMAL
     Dosage: 10 MG, DAILY

REACTIONS (4)
  - Drug ineffective [Unknown]
  - Intentional drug misuse [Unknown]
  - Insomnia [Unknown]
  - Fatigue [Unknown]
